FAERS Safety Report 4350586-0 (Version None)
Quarter: 2004Q2

REPORT INFORMATION
  Report Type: 
  Country: None (occurrence: None)
  Receive Date: 20040427
  Receipt Date: 20040415
  Transmission Date: 20050107
  Serious: Yes (Hospitalization)
  Sender: FDA-Public Use
  Company Number: 440001M04USA

PATIENT
  Age: 53 Year
  Sex: Male
  Weight: 85.9 kg

DRUGS (1)
  1. SEROSTIM [Suspect]
     Indication: CACHEXIA
     Dosage: 4 MG, 1 IN 1 DAYS, SUBCUTANEOUS
     Route: 058
     Dates: start: 20040331, end: 20040404

REACTIONS (2)
  - ACUTE MYOCARDIAL INFARCTION [None]
  - HIGH DENSITY LIPOPROTEIN DECREASED [None]
